FAERS Safety Report 11029489 (Version 18)
Quarter: 2021Q3

REPORT INFORMATION
  Report Type: Other
  Country: CA (occurrence: CA)
  Receive Date: 20150415
  Receipt Date: 20210713
  Transmission Date: 20211014
  Serious: Yes (Other)
  Sender: FDA-Public Use
  Company Number: CA-ROCHE-1338352

PATIENT
  Age: 52 Year
  Sex: Female
  Weight: 90.7 kg

DRUGS (28)
  1. PRAMIPEXOLE. [Concomitant]
     Active Substance: PRAMIPEXOLE
  2. METFORMIN [Concomitant]
     Active Substance: METFORMIN HYDROCHLORIDE
  3. ACETAMINOPHEN. [Concomitant]
     Active Substance: ACETAMINOPHEN
     Indication: PREMEDICATION
     Route: 048
     Dates: start: 20140121
  4. DIAMICRON [Concomitant]
     Active Substance: GLICLAZIDE
  5. TEVA HYDROMORPHONE [Concomitant]
  6. METHYLPREDNISOLONE. [Concomitant]
     Active Substance: METHYLPREDNISOLONE
     Indication: PREMEDICATION
     Route: 042
     Dates: start: 20140121
  7. RISEDRONATE [Concomitant]
     Active Substance: RISEDRONATE SODIUM
  8. CELEBREX [Concomitant]
     Active Substance: CELECOXIB
  9. PREMARIN [Concomitant]
     Active Substance: ESTROGENS, CONJUGATED
  10. ACTEMRA [Suspect]
     Active Substance: TOCILIZUMAB
     Indication: RHEUMATOID ARTHRITIS
     Route: 042
     Dates: start: 20111220, end: 20120223
  11. PREDNISONE. [Concomitant]
     Active Substance: PREDNISONE
  12. OXAZEPAM. [Concomitant]
     Active Substance: OXAZEPAM
  13. PANTOPRAZOLE [Concomitant]
     Active Substance: PANTOPRAZOLE
  14. RITUXAN [Suspect]
     Active Substance: RITUXIMAB
     Indication: RHEUMATOID ARTHRITIS
     Route: 042
     Dates: start: 20140121
  15. EMTEC [Concomitant]
     Active Substance: ACETAMINOPHEN\CODEINE PHOSPHATE
  16. RIVA DUTASTERIDE [Concomitant]
  17. DIPHENHYDRAMINE HCL [Concomitant]
     Active Substance: DIPHENHYDRAMINE HYDROCHLORIDE
     Indication: PREMEDICATION
     Route: 048
     Dates: start: 20140121
  18. RITUXAN [Suspect]
     Active Substance: RITUXIMAB
     Route: 042
     Dates: start: 20150401
  19. ONGLYZA [Suspect]
     Active Substance: SAXAGLIPTIN HYDROCHLORIDE
     Indication: DIABETES MELLITUS
     Route: 065
     Dates: start: 20140512
  20. FOLIC ACID. [Concomitant]
     Active Substance: FOLIC ACID
  21. INSULIN [Concomitant]
     Active Substance: INSULIN NOS
  22. PANTOLOC [Concomitant]
     Active Substance: PANTOPRAZOLE SODIUM
  23. VESICARE [Concomitant]
     Active Substance: SOLIFENACIN SUCCINATE
  24. METHOTREXATE. [Concomitant]
     Active Substance: METHOTREXATE
  25. RITUXAN [Suspect]
     Active Substance: RITUXIMAB
     Dosage: LAST  RITUXAN INFUSION: 07?OCT?2014
     Route: 042
     Dates: start: 20140923
  26. RITUXAN [Suspect]
     Active Substance: RITUXIMAB
     Route: 042
     Dates: start: 20150331
  27. HUMULIN NOS [Concomitant]
     Active Substance: INSULIN HUMAN
  28. PRAMIPEXOLE. [Concomitant]
     Active Substance: PRAMIPEXOLE

REACTIONS (34)
  - Dizziness [Not Recovered/Not Resolved]
  - Heart rate decreased [Unknown]
  - Blood pressure diastolic decreased [Unknown]
  - Cyst [Unknown]
  - Arthralgia [Unknown]
  - Scab [Recovering/Resolving]
  - Fall [Unknown]
  - Heart rate decreased [Unknown]
  - Joint stiffness [Not Recovered/Not Resolved]
  - Blood pressure diastolic abnormal [Unknown]
  - Nausea [Not Recovered/Not Resolved]
  - Nasopharyngitis [Unknown]
  - Fatigue [Not Recovered/Not Resolved]
  - Oxygen saturation decreased [Unknown]
  - Blood pressure systolic increased [Unknown]
  - Thermal burn [Recovering/Resolving]
  - Asthenia [Not Recovered/Not Resolved]
  - Decreased appetite [Not Recovered/Not Resolved]
  - Hypertension [Recovered/Resolved]
  - Feeling of body temperature change [Unknown]
  - Rash [Not Recovered/Not Resolved]
  - Pain in extremity [Unknown]
  - Loss of consciousness [Recovered/Resolved]
  - Infusion related reaction [Recovered/Resolved]
  - Blood pressure fluctuation [Unknown]
  - Sinusitis [Not Recovered/Not Resolved]
  - Pharyngeal oedema [Not Recovered/Not Resolved]
  - Blood glucose increased [Unknown]
  - Acne [Unknown]
  - Infusion related reaction [Unknown]
  - Diarrhoea [Recovered/Resolved]
  - Arthralgia [Not Recovered/Not Resolved]
  - Erythema [Unknown]
  - Neuralgia [Unknown]

NARRATIVE: CASE EVENT DATE: 20140121
